FAERS Safety Report 7631946-9 (Version None)
Quarter: 2011Q3

REPORT INFORMATION
  Report Type: 
  Country: None (occurrence: None)
  Receive Date: 20110725
  Receipt Date: 20110516
  Transmission Date: 20111222
  Serious: No
  Sender: FDA-Public Use
  Company Number: US-BRISTOL-MYERS SQUIBB COMPANY-15747330

PATIENT
  Age: 81 Year
  Sex: Female
  Weight: 66 kg

DRUGS (6)
  1. COUMADIN [Suspect]
     Dosage: 5 MG ONE NIGHT, AND 7.5MG ALTERNATING EACH DAY
     Dates: start: 19960101
  2. CALCIUM + VITAMIN D [Concomitant]
  3. TYLENOL-500 [Concomitant]
  4. ALENDRONATE SODIUM [Concomitant]
     Indication: OSTEOPOROSIS
  5. VITAMIN TAB [Concomitant]
  6. MINERAL TAB [Concomitant]

REACTIONS (1)
  - INTERNATIONAL NORMALISED RATIO FLUCTUATION [None]
